FAERS Safety Report 21733872 (Version 1)
Quarter: 2022Q4

REPORT INFORMATION
  Report Type: Spontaneous
  Country: US (occurrence: None)
  Receive Date: 20221215
  Receipt Date: 20221215
  Transmission Date: 20230112
  Serious: Yes (Congenital Anomaly)
  Sender: FDA-Public Use
  Company Number: US-ROCHE-3238813

PATIENT

DRUGS (1)
  1. XOLAIR [Suspect]
     Active Substance: OMALIZUMAB
     Indication: Product used for unknown indication
     Route: 064
     Dates: start: 20190730

REACTIONS (2)
  - Foetal growth restriction [Unknown]
  - Foetal exposure during pregnancy [Unknown]
